FAERS Safety Report 5334302-1 (Version None)
Quarter: 2007Q2

REPORT INFORMATION
  Report Type: 
  Country: None (occurrence: None)
  Receive Date: 20070525
  Receipt Date: 20070521
  Transmission Date: 20071010
  Serious: Yes (Death)
  Sender: FDA-Public Use
  Company Number: PHFR2007GB01662

PATIENT
  Sex: Male

DRUGS (2)
  1. AZATHIOPRINE [Concomitant]
     Indication: MYASTHENIA GRAVIS
     Route: 065
     Dates: start: 19870101
  2. CYCLOSPORINE [Suspect]
     Route: 065
     Dates: start: 19991101

REACTIONS (2)
  - IMMUNOSUPPRESSION [None]
  - MYASTHENIA GRAVIS [None]
